FAERS Safety Report 22253633 (Version 2)
Quarter: 2023Q2

REPORT INFORMATION
  Report Type: Spontaneous
  Country: CA (occurrence: CA)
  Receive Date: 20230426
  Receipt Date: 20230616
  Transmission Date: 20230722
  Serious: Yes (Other)
  Sender: FDA-Public Use
  Company Number: CA-AUROBINDO-AUR-APL-2023-032378

PATIENT
  Age: 52 Year
  Sex: Male
  Weight: 65.76 kg

DRUGS (1)
  1. MIRTAZAPINE [Suspect]
     Active Substance: MIRTAZAPINE
     Indication: Insomnia
     Dosage: 3.75 MILLIGRAM, ONCE A DAY
     Route: 048

REACTIONS (13)
  - Akathisia [Unknown]
  - Anxiety [Unknown]
  - Brain fog [Unknown]
  - Dizziness [Unknown]
  - Feeling abnormal [Unknown]
  - Food intolerance [Unknown]
  - Histamine intolerance [Unknown]
  - Insomnia [Unknown]
  - Nausea [Unknown]
  - Suicidal ideation [Unknown]
  - Visual impairment [Unknown]
  - Weight decreased [Unknown]
  - Withdrawal syndrome [Unknown]
